FAERS Safety Report 9499470 (Version 1)
Quarter: 2013Q1

REPORT INFORMATION
  Report Type: Spontaneous
  Country: US (occurrence: None)
  Receive Date: 20130107
  Receipt Date: 20130107
  Transmission Date: 20140127
  Serious: No
  Sender: FDA-Public Use
  Company Number: PHEH2012US022908

PATIENT
  Age: 52 Year
  Sex: Female

DRUGS (1)
  1. GILENYA [Suspect]
     Indication: MULTIPLE SCLEROSIS
     Route: 048
     Dates: start: 20121025

REACTIONS (8)
  - Blood pressure increased [None]
  - Upper respiratory tract infection [None]
  - Malaise [None]
  - Dizziness [None]
  - Cough [None]
  - Oropharyngeal pain [None]
  - Increased upper airway secretion [None]
  - Pain of skin [None]
